FAERS Safety Report 10803189 (Version 1)
Quarter: 2015Q1

REPORT INFORMATION
  Report Type: Report from Study
  Country: US (occurrence: US)
  Receive Date: 20150217
  Receipt Date: 20150217
  Transmission Date: 20150721
  Serious: Yes (Other)
  Sender: FDA-Public Use
  Company Number: US-SA-2015SA017542

PATIENT
  Age: 62 Year
  Sex: Female

DRUGS (2)
  1. LANTUS SOLOSTAR [Suspect]
     Active Substance: INSULIN GLARGINE
     Indication: DIABETES MELLITUS
     Dosage: DOSE:65 UNIT(S)
     Route: 065
     Dates: end: 20150206
  2. SOLOSTAR [Concomitant]
     Active Substance: DEVICE
     Dates: end: 20150206

REACTIONS (3)
  - Inappropriate schedule of drug administration [Unknown]
  - Blood glucose increased [Unknown]
  - Glaucoma [Unknown]
